FAERS Safety Report 5136962-7 (Version None)
Quarter: 2006Q4

REPORT INFORMATION
  Report Type: 
  Country: None (occurrence: None)
  Receive Date: 20061024
  Receipt Date: 20061011
  Transmission Date: 20070319
  Serious: Yes (Other)
  Sender: FDA-Public Use
  Company Number: 2006125581

PATIENT
  Sex: Female
  Weight: 44.4525 kg

DRUGS (2)
  1. LYRICA [Suspect]
     Indication: PSORIATIC ARTHROPATHY
     Dosage: 100 MG (50 MG, 2 IN 1 D)
     Dates: start: 20060901
  2. LEVOTHYROXINE SODIUM [Concomitant]

REACTIONS (12)
  - ACTIVITIES OF DAILY LIVING IMPAIRED [None]
  - ANGER [None]
  - APHASIA [None]
  - COGNITIVE DISORDER [None]
  - EMOTIONAL DISORDER [None]
  - FAECAL INCONTINENCE [None]
  - IMPAIRED DRIVING ABILITY [None]
  - IRRITABILITY [None]
  - PAIN [None]
  - SPEECH DISORDER [None]
  - THINKING ABNORMAL [None]
  - URINARY INCONTINENCE [None]
